FAERS Safety Report 10016114 (Version 1)
Quarter: 2014Q1

REPORT INFORMATION
  Report Type: Spontaneous
  Country: IT (occurrence: IT)
  Receive Date: 20140317
  Receipt Date: 20140317
  Transmission Date: 20141002
  Serious: Yes (Other)
  Sender: FDA-Public Use
  Company Number: IT-PFIZER INC-2014072829

PATIENT
  Sex: Female

DRUGS (1)
  1. ZYVOXID [Suspect]

REACTIONS (1)
  - Cholinergic syndrome [Unknown]
